FAERS Safety Report 8968326 (Version 1)
Quarter: 2012Q4

REPORT INFORMATION
  Report Type: Spontaneous
  Country: US (occurrence: None)
  Receive Date: 20121214
  Receipt Date: 20121214
  Transmission Date: 20130627
  Serious: Yes (Other)
  Sender: FDA-Public Use
  Company Number: None

PATIENT
  Age: 49 Year
  Sex: Female
  Weight: 117.94 kg

DRUGS (1)
  1. VIGAMOX [Suspect]
     Dosage: 1 drop, every 8 hrs, opthalmic
     Route: 047
     Dates: start: 20121121, end: 20121206

REACTIONS (1)
  - Urticaria [None]
